FAERS Safety Report 19363077 (Version 7)
Quarter: 2022Q2

REPORT INFORMATION
  Report Type: Report from Study
  Country: PA (occurrence: PA)
  Receive Date: 20210603
  Receipt Date: 20220606
  Transmission Date: 20220721
  Serious: Yes (Hospitalization, Other)
  Sender: FDA-Public Use
  Company Number: NVSC2019PA004256

PATIENT
  Age: 48 Year
  Sex: Female
  Weight: 53.968 kg

DRUGS (3)
  1. GILENYA [Suspect]
     Active Substance: FINGOLIMOD HYDROCHLORIDE
     Indication: Multiple sclerosis
     Dosage: 0.5 MG, QD
     Route: 048
     Dates: start: 20191003, end: 20200925
  2. GILENYA [Suspect]
     Active Substance: FINGOLIMOD HYDROCHLORIDE
     Dosage: 0.5 MG, QD
     Route: 048
     Dates: end: 20210914
  3. GILENYA [Suspect]
     Active Substance: FINGOLIMOD HYDROCHLORIDE
     Dosage: 0.5 MG, QD
     Route: 048
     Dates: start: 20190310

REACTIONS (32)
  - Neuralgia [Not Recovered/Not Resolved]
  - Vomiting [Recovered/Resolved]
  - Abdominal pain [Unknown]
  - Diarrhoea [Recovered/Resolved]
  - Hyperhidrosis [Recovered/Resolved]
  - Chest pain [Not Recovered/Not Resolved]
  - Fall [Not Recovered/Not Resolved]
  - Hypothermia [Not Recovered/Not Resolved]
  - Hypotension [Not Recovered/Not Resolved]
  - Orthostatic hypotension [Not Recovered/Not Resolved]
  - Abdominal discomfort [Not Recovered/Not Resolved]
  - Headache [Not Recovered/Not Resolved]
  - Diarrhoea [Not Recovered/Not Resolved]
  - Off label use [Unknown]
  - Feeling abnormal [Unknown]
  - Neck pain [Unknown]
  - Toxicity to various agents [Unknown]
  - Coccydynia [Unknown]
  - Pain in extremity [Unknown]
  - Joint injury [Unknown]
  - Malaise [Unknown]
  - Nasal congestion [Unknown]
  - Choking sensation [Unknown]
  - Pyrexia [Unknown]
  - Movement disorder [Unknown]
  - Trigeminal neuralgia [Recovering/Resolving]
  - Facial discomfort [Unknown]
  - Hypoaesthesia [Unknown]
  - Bacterial infection [Unknown]
  - Dyspnoea [Unknown]
  - Nausea [Recovered/Resolved]
  - Cough [Unknown]

NARRATIVE: CASE EVENT DATE: 20191201
